FAERS Safety Report 6157483-9 (Version None)
Quarter: 2009Q2

REPORT INFORMATION
  Report Type: 
  Country: None (occurrence: None)
  Receive Date: 20090416
  Receipt Date: 20090409
  Transmission Date: 20091009
  Serious: Yes (Other)
  Sender: FDA-Public Use
  Company Number: PHHY2009JP13250

PATIENT
  Age: 50 Year
  Sex: Male

DRUGS (5)
  1. DIOVAN [Suspect]
     Indication: HYPERTENSION
     Dosage: 80 MG, BID
     Route: 048
  2. DIOVAN [Suspect]
     Dosage: 80 MG, QD
     Route: 048
  3. DIOVAN [Suspect]
     Dosage: 80 MG, BID
     Route: 048
  4. DIOVAN [Suspect]
     Dosage: 80 MG DAILY
  5. ADALAT [Concomitant]
     Dosage: 20 MG ONCE DAILY
     Route: 048

REACTIONS (3)
  - BLOOD PRESSURE INCREASED [None]
  - HAEMOLYTIC ANAEMIA [None]
  - SERUM FERRITIN INCREASED [None]
